FAERS Safety Report 13397926 (Version 2)
Quarter: 2017Q2

REPORT INFORMATION
  Report Type: Report from Study
  Country: FR (occurrence: FR)
  Receive Date: 20170403
  Receipt Date: 20170426
  Transmission Date: 20170830
  Serious: Yes (Death, Hospitalization)
  Sender: FDA-Public Use
  Company Number: FR-EISAI MEDICAL RESEARCH-EC-2017-025946

PATIENT
  Age: 83 Year
  Sex: Female
  Weight: 47 kg

DRUGS (1)
  1. LENVATINIB [Suspect]
     Active Substance: LENVATINIB
     Indication: ANAPLASTIC THYROID CANCER
     Route: 048
     Dates: start: 20170311, end: 20170319

REACTIONS (2)
  - Pleural effusion [Not Recovered/Not Resolved]
  - Hypoxia [Fatal]

NARRATIVE: CASE EVENT DATE: 20170311
